FAERS Safety Report 10148996 (Version 1)
Quarter: 2014Q2

REPORT INFORMATION
  Report Type: Spontaneous
  Country: FR (occurrence: FR)
  Receive Date: 20140502
  Receipt Date: 20140502
  Transmission Date: 20141212
  Serious: Yes (Life-Threatening, Hospitalization)
  Sender: FDA-Public Use
  Company Number: FR-BRISTOL-MYERS SQUIBB COMPANY-20672093

PATIENT
  Age: 68 Year
  Sex: Male

DRUGS (1)
  1. COUMADINE [Suspect]
     Dosage: RESTARTED: 1 MONTH LATER - CONTINUED
     Route: 048

REACTIONS (2)
  - Gastrointestinal haemorrhage [Unknown]
  - Hypotension [Unknown]
